FAERS Safety Report 5599657-1 (Version None)
Quarter: 2008Q1

REPORT INFORMATION
  Report Type: 
  Country: None (occurrence: None)
  Receive Date: 20080118
  Receipt Date: 20080118
  Transmission Date: 20080703
  Serious: Yes (Disabling)
  Sender: FDA-Public Use
  Company Number: None

PATIENT
  Age: 69 Year
  Sex: Female
  Weight: 65.7716 kg

DRUGS (8)
  1. VERAPAMIL EXTENDED-RELEASE [Suspect]
     Indication: HYPERTENSION
     Dosage: 1 TAB DAILY
     Dates: start: 20061210, end: 20070105
  2. VERAPAMIL EXTENDED-RELEASE [Suspect]
     Indication: PALPITATIONS
     Dosage: 1 TAB DAILY
     Dates: start: 20061210, end: 20070105
  3. LIPITOR [Concomitant]
  4. FOSOMAX [Concomitant]
  5. DIOVAN HCT [Concomitant]
  6. AMBIEN [Concomitant]
  7. XANAX [Concomitant]
  8. MULTI-VITAMIN [Concomitant]

REACTIONS (4)
  - DEAFNESS UNILATERAL [None]
  - DYSPNOEA [None]
  - OEDEMA PERIPHERAL [None]
  - SWELLING FACE [None]
